FAERS Safety Report 6439226-4 (Version None)
Quarter: 2009Q4

REPORT INFORMATION
  Report Type: 
  Country: None (occurrence: None)
  Receive Date: 20091111
  Receipt Date: 20091111
  Transmission Date: 20100525
  Serious: Yes (Other)
  Sender: FDA-Public Use
  Company Number: None

PATIENT
  Age: 51 Year
  Sex: Female

DRUGS (1)
  1. AMOXICILLIN [Suspect]
     Indication: TOOTH INFECTION
     Dosage: 500MG 3X DAY PO
     Route: 048
     Dates: start: 20091031, end: 20091104

REACTIONS (6)
  - BURNING SENSATION [None]
  - OEDEMA PERIPHERAL [None]
  - PARAESTHESIA ORAL [None]
  - PRURITUS [None]
  - RASH GENERALISED [None]
  - URINARY RETENTION [None]
